FAERS Safety Report 10665419 (Version 1)
Quarter: 2014Q4

REPORT INFORMATION
  Report Type: Spontaneous
  Country: US (occurrence: None)
  Receive Date: 20141208
  Receipt Date: 20141208
  Transmission Date: 20150529
  Serious: No
  Sender: FDA-Public Use
  Company Number: 2014TUS007125

PATIENT
  Sex: Male

DRUGS (4)
  1. ULORIC [Concomitant]
     Active Substance: FEBUXOSTAT
  2. BUSPIRONE [Concomitant]
     Active Substance: BUSPIRONE HYDROCHLORIDE
  3. BRINTELLIX [Suspect]
     Active Substance: VORTIOXETINE HYDROBROMIDE
     Indication: MAJOR DEPRESSION
     Route: 048
     Dates: start: 20140724
  4. MELOXICAM. [Concomitant]
     Active Substance: MELOXICAM

REACTIONS (3)
  - Somnolence [None]
  - Hypertension [None]
  - Diarrhoea [None]

NARRATIVE: CASE EVENT DATE: 20140804
